FAERS Safety Report 14300229 (Version 1)
Quarter: 2017Q4

REPORT INFORMATION
  Report Type: Spontaneous
  Country: US (occurrence: US)
  Receive Date: 20171219
  Receipt Date: 20171219
  Transmission Date: 20180321
  Serious: No
  Sender: FDA-Public Use
  Company Number: US-TEVA-725224ACC

PATIENT
  Age: 22 Year
  Sex: Female
  Weight: 53 kg

DRUGS (1)
  1. AZITHROMYCIN ANHYDROUS. [Suspect]
     Active Substance: AZITHROMYCIN ANHYDROUS
     Indication: RESPIRATORY TRACT INFECTION
     Dates: start: 20161227

REACTIONS (2)
  - Myalgia [Unknown]
  - Back pain [Unknown]

NARRATIVE: CASE EVENT DATE: 20161228
